FAERS Safety Report 10900686 (Version 3)
Quarter: 2015Q3

REPORT INFORMATION
  Report Type: Spontaneous
  Country: JP (occurrence: None)
  Receive Date: 20150303
  Receipt Date: 20150706
  Transmission Date: 20151125
  Serious: Yes (Other)
  Sender: FDA-Public Use
  Company Number: ABR_02061_2015

PATIENT
  Age: 69 Year
  Sex: Female

DRUGS (1)
  1. GLIADEL [Suspect]
     Active Substance: CARMUSTINE
     Indication: MALIGNANT GLIOMA
     Dosage: 8 TOTAL INTRACEREBRAL
     Dates: start: 20131002

REACTIONS (5)
  - Condition aggravated [None]
  - Radiation necrosis [None]
  - Brain oedema [None]
  - Hemiplegia [None]
  - Neurological symptom [None]

NARRATIVE: CASE EVENT DATE: 20131108
